FAERS Safety Report 6466549-5 (Version None)
Quarter: 2009Q4

REPORT INFORMATION
  Report Type: 
  Country: None (occurrence: None)
  Receive Date: 20091127
  Receipt Date: 20091117
  Transmission Date: 20100525
  Serious: No
  Sender: FDA-Public Use
  Company Number: 2009027819

PATIENT
  Age: 48 Year
  Sex: Female
  Weight: 72.5755 kg

DRUGS (6)
  1. FENTORA [Suspect]
     Indication: AUTOIMMUNE DISORDER
     Dosage: 800 MCG, BU
     Route: 002
     Dates: start: 20090401, end: 20090501
  2. DILAUDID [Concomitant]
  3. OXYCONTIN [Concomitant]
  4. ARTHROTEC [Concomitant]
  5. AMBIEN [Concomitant]
  6. VALIUM [Concomitant]

REACTIONS (1)
  - DRUG PRESCRIBING ERROR [None]
